FAERS Safety Report 6663710-1 (Version None)
Quarter: 2010Q1

REPORT INFORMATION
  Report Type: 
  Country: None (occurrence: None)
  Receive Date: 20100331
  Receipt Date: 20100331
  Transmission Date: 20100710
  Serious: Yes (Hospitalization, Other)
  Sender: FDA-Public Use
  Company Number: None

PATIENT
  Age: 49 Year
  Sex: Female
  Weight: 58.514 kg

DRUGS (1)
  1. LEXAPRO [Suspect]
     Indication: DEPRESSION
     Dosage: 1/2 TAB EVERY DAY PO
     Route: 048
     Dates: start: 20100227, end: 20100312

REACTIONS (2)
  - PSYCHIATRIC EVALUATION [None]
  - SUICIDAL IDEATION [None]
